FAERS Safety Report 15939238 (Version 2)
Quarter: 2019Q1

REPORT INFORMATION
  Report Type: Spontaneous
  Country: GB (occurrence: GB)
  Receive Date: 20190208
  Receipt Date: 20190219
  Transmission Date: 20190417
  Serious: Yes (Hospitalization, Other)
  Sender: FDA-Public Use
  Company Number: GB-JNJFOC-20190205733

PATIENT
  Age: 62 Year
  Sex: Male

DRUGS (3)
  1. HALOPERIDOL. [Suspect]
     Active Substance: HALOPERIDOL
     Indication: PRODUCT USED FOR UNKNOWN INDICATION
     Route: 065
  2. CLOZARIL [Suspect]
     Active Substance: CLOZAPINE
     Indication: SCHIZOPHRENIA
     Route: 048
     Dates: start: 20171124
  3. CLOZARIL [Suspect]
     Active Substance: CLOZAPINE
     Indication: SCHIZOPHRENIA
     Route: 048
     Dates: end: 20181228

REACTIONS (4)
  - Neutropenia [Unknown]
  - Pneumonia [Unknown]
  - Haemoglobin decreased [Not Recovered/Not Resolved]
  - Malabsorption [Unknown]

NARRATIVE: CASE EVENT DATE: 2018
